FAERS Safety Report 25094547 (Version 4)
Quarter: 2025Q2

REPORT INFORMATION
  Report Type: Report from Study
  Country: US (occurrence: US)
  Receive Date: 20250319
  Receipt Date: 20250428
  Transmission Date: 20250716
  Serious: Yes (Death, Hospitalization, Other)
  Sender: GILEAD
  Company Number: US-GILEAD-2024-0697669

PATIENT
  Sex: Female

DRUGS (8)
  1. AMBRISENTAN [Suspect]
     Active Substance: AMBRISENTAN
     Indication: Pulmonary arterial hypertension
     Dosage: 5 MG, QD
     Route: 048
     Dates: start: 20200511
  2. AMBRISENTAN [Suspect]
     Active Substance: AMBRISENTAN
     Dosage: 5 MG, QD
     Route: 048
     Dates: start: 20200511
  3. AMBRISENTAN [Suspect]
     Active Substance: AMBRISENTAN
     Dosage: 8 MG, QD
     Route: 048
     Dates: start: 20200511
  4. REMODULIN [Concomitant]
     Active Substance: TREPROSTINIL
     Route: 058
  5. REMODULIN [Concomitant]
     Active Substance: TREPROSTINIL
     Route: 042
  6. UPTRAVI [Concomitant]
     Active Substance: SELEXIPAG
  7. SILDENAFIL CITRATE [Concomitant]
     Active Substance: SILDENAFIL CITRATE
  8. ELIQUIS [Concomitant]
     Active Substance: APIXABAN

REACTIONS (8)
  - Respiratory failure [Fatal]
  - Pulmonary arterial hypertension [Unknown]
  - Carbon monoxide poisoning [Unknown]
  - Syncope [Unknown]
  - Urinary retention [Unknown]
  - Oxygen consumption increased [Unknown]
  - Haemoglobin decreased [Unknown]
  - Joint swelling [Unknown]
